FAERS Safety Report 21467658 (Version 1)
Quarter: 2022Q4

REPORT INFORMATION
  Report Type: Spontaneous
  Country: US (occurrence: US)
  Receive Date: 20221017
  Receipt Date: 20221017
  Transmission Date: 20230113
  Serious: No
  Sender: FDA-Public Use
  Company Number: US-ALLERGAN-2135118US

PATIENT
  Sex: Female

DRUGS (4)
  1. LINZESS [Suspect]
     Active Substance: LINACLOTIDE
     Indication: Irritable bowel syndrome
     Dosage: 2 PILLS A DAY
  2. LINZESS [Suspect]
     Active Substance: LINACLOTIDE
     Dosage: 1 PILL PER DAY TO BEGIN
     Dates: start: 20210715
  3. MIRALAX [Concomitant]
     Active Substance: POLYETHYLENE GLYCOL 3350
     Dosage: ON OCCASION
  4. SENNA GEN [Concomitant]
     Active Substance: SENNOSIDES
     Dosage: UNK, QD

REACTIONS (1)
  - Off label use [Unknown]
